FAERS Safety Report 7393214-2 (Version None)
Quarter: 2011Q2

REPORT INFORMATION
  Report Type: 
  Country: None (occurrence: None)
  Receive Date: 20110405
  Receipt Date: 20110325
  Transmission Date: 20111010
  Serious: Yes (Hospitalization)
  Sender: FDA-Public Use
  Company Number: NL-AMGEN-NLDSP2011008109

PATIENT
  Age: 64 Year
  Sex: Female
  Weight: 80 kg

DRUGS (7)
  1. ENBREL [Suspect]
     Indication: RHEUMATOID ARTHRITIS
     Dosage: 50 MG, UNK
     Dates: start: 20060331
  2. TAMBOCOR [Concomitant]
     Dosage: 200 MG, 1X/DAY
  3. CALCICHEW [Concomitant]
     Dosage: UNK
  4. ASCAL [Concomitant]
     Dosage: 80 MG, 1X/DAY
  5. CELEBREX [Concomitant]
     Indication: RHEUMATOID ARTHRITIS
     Dosage: 200 MG, 2X/DAY
     Dates: start: 20080701
  6. SIMVASTATIN [Concomitant]
     Dosage: UNK
  7. PROTON PUMP INHIBITORS [Concomitant]
     Dosage: UNK

REACTIONS (3)
  - ORGANISING PNEUMONIA [None]
  - DYSPHONIA [None]
  - BACK PAIN [None]
